FAERS Safety Report 5193175-0 (Version None)
Quarter: 2006Q4

REPORT INFORMATION
  Report Type: 
  Country: None (occurrence: None)
  Receive Date: 20061228
  Receipt Date: 20060616
  Transmission Date: 20070319
  Serious: No
  Sender: FDA-Public Use
  Company Number: US-GLAXOSMITHKLINE-A0609507A

PATIENT
  Sex: Male

DRUGS (8)
  1. AVODART [Suspect]
     Indication: BENIGN PROSTATIC HYPERPLASIA
     Dosage: .5MG PER DAY
     Route: 048
  2. COUMADIN [Concomitant]
  3. COREG [Concomitant]
  4. LASIX [Concomitant]
  5. ALTACE [Concomitant]
  6. UROXATRAL [Concomitant]
  7. VITAMINS [Concomitant]
  8. CALCIUM [Concomitant]

REACTIONS (1)
  - DRUG INEFFECTIVE [None]
